FAERS Safety Report 10196783 (Version 1)
Quarter: 2014Q2

REPORT INFORMATION
  Report Type: Report from Study
  Country: US (occurrence: US)
  Receive Date: 20140527
  Receipt Date: 20140527
  Transmission Date: 20141212
  Serious: Yes (Hospitalization)
  Sender: FDA-Public Use
  Company Number: US-SA-2014SA064342

PATIENT
  Age: 38 Year
  Sex: Male

DRUGS (1)
  1. KYNAMRO [Suspect]
     Indication: TYPE IIA HYPERLIPIDAEMIA
     Dates: start: 20140109

REACTIONS (2)
  - Drug dose omission [Unknown]
  - Hospitalisation [Unknown]
